FAERS Safety Report 4282409-2 (Version None)
Quarter: 2004Q1

REPORT INFORMATION
  Report Type: 
  Country: None (occurrence: None)
  Receive Date: 20040129
  Receipt Date: 20040119
  Transmission Date: 20041129
  Serious: Yes (Other)
  Sender: FDA-Public Use
  Company Number: 22869

PATIENT
  Sex: Female

DRUGS (2)
  1. THEOPHYLLINE [Suspect]
  2. ALENDRONATE SODIUM [Suspect]

REACTIONS (3)
  - CONVULSION [None]
  - DRUG INTERACTION [None]
  - DRUG TOXICITY [None]
